FAERS Safety Report 11474407 (Version 1)
Quarter: 2015Q3

REPORT INFORMATION
  Report Type: Report from Study
  Country: FR (occurrence: FR)
  Receive Date: 20150908
  Receipt Date: 20150908
  Transmission Date: 20151125
  Serious: No
  Sender: FDA-Public Use
  Company Number: FR-JAZZ-2014-FR-008298

PATIENT
  Age: 17 Year
  Sex: Female
  Weight: 75 kg

DRUGS (4)
  1. XYREM [Suspect]
     Active Substance: SODIUM OXYBATE
     Indication: CATAPLEXY
     Dosage: 3 G, BID
     Route: 048
     Dates: start: 20140515
  2. MODAFINIL. [Concomitant]
     Active Substance: MODAFINIL
     Indication: CATAPLEXY
  3. XYREM [Suspect]
     Active Substance: SODIUM OXYBATE
     Indication: NARCOLEPSY
     Dosage: 2.25 G, BID
     Route: 048
     Dates: start: 20140424, end: 20140514
  4. MODAFINIL. [Concomitant]
     Active Substance: MODAFINIL
     Indication: NARCOLEPSY
     Dosage: UNK

REACTIONS (11)
  - Dizziness [Unknown]
  - Insomnia [Unknown]
  - Product use issue [Unknown]
  - Hallucination [Unknown]
  - Weight decreased [Unknown]
  - Disorientation [Unknown]
  - Decreased appetite [Unknown]
  - Nightmare [Unknown]
  - Fatigue [Unknown]
  - Cataplexy [Recovered/Resolved]
  - Tremor [Unknown]

NARRATIVE: CASE EVENT DATE: 2014
